FAERS Safety Report 10102130 (Version 1)
Quarter: 2014Q2

REPORT INFORMATION
  Report Type: Spontaneous
  Country: GB (occurrence: None)
  Receive Date: 20140422
  Receipt Date: 20140422
  Transmission Date: 20141212
  Serious: Yes (Other)
  Sender: FDA-Public Use
  Company Number: AUR-APL-2014-04454

PATIENT
  Age: 77 Year
  Sex: Female
  Weight: 51.7 kg

DRUGS (1)
  1. GABAPENTIN (GABAPENTIN) [Suspect]
     Indication: NEURALGIA

REACTIONS (1)
  - Proctalgia [None]
